FAERS Safety Report 4469142-9 (Version None)
Quarter: 2004Q4

REPORT INFORMATION
  Report Type: 
  Country: None (occurrence: None)
  Receive Date: 20041005
  Receipt Date: 20040921
  Transmission Date: 20050328
  Serious: Yes (Hospitalization, Disabling)
  Sender: FDA-Public Use
  Company Number: 2004SE02863

PATIENT
  Age: 42 Year
  Sex: Female

DRUGS (13)
  1. BLOPRESS [Suspect]
     Indication: HYPERTENSION
     Dates: start: 20040301, end: 20040317
  2. ISOSORBIDE MONONITRATE [Concomitant]
  3. DILTIAZEM HYDROCHLORIDE [Concomitant]
  4. INDAPAMIDE [Concomitant]
  5. TROLAMINE SALICYLATE [Concomitant]
  6. LOXOPROFEN SODIUM [Concomitant]
  7. AZITHROMYCIN [Concomitant]
  8. TELITHROMYCIN [Concomitant]
  9. PIPERACILLIN SODIUM [Concomitant]
  10. FLOMOXEF SODIUM [Concomitant]
  11. CEFEPIME HYDROCHLORIDE [Concomitant]
  12. ORGAN LYSATE, STANDARDIZED [Concomitant]
  13. LEVOFLOXACIN [Concomitant]

REACTIONS (3)
  - LACRIMAL DISORDER [None]
  - OCULAR HYPERAEMIA [None]
  - STEVENS-JOHNSON SYNDROME [None]
